FAERS Safety Report 4428240-6 (Version None)
Quarter: 2004Q3

REPORT INFORMATION
  Report Type: 
  Country: None (occurrence: None)
  Receive Date: 20040813
  Receipt Date: 20040809
  Transmission Date: 20050211
  Serious: Yes (Hospitalization)
  Sender: FDA-Public Use
  Company Number: 2004UW16892

PATIENT
  Age: 81 Year
  Sex: Female
  Weight: 63.5036 kg

DRUGS (5)
  1. IRESSA [Suspect]
     Indication: ADENOCARCINOMA
     Dosage: 250 MG PO
     Route: 048
     Dates: start: 20040101
  2. IRESSA [Suspect]
     Indication: SMALL CELL LUNG CANCER STAGE UNSPECIFIED
     Dosage: 250 MG PO
     Route: 048
     Dates: start: 20040101
  3. ZOCOR [Concomitant]
  4. EYE DROPS [Concomitant]
  5. UNSPECIFIED ^ZANTAC^ LIKE PILL [Concomitant]

REACTIONS (4)
  - BRONCHITIS [None]
  - DRY SKIN [None]
  - RASH [None]
  - SINUSITIS [None]
